FAERS Safety Report 13725944 (Version 1)
Quarter: 2017Q3

REPORT INFORMATION
  Report Type: Spontaneous
  Country: US (occurrence: US)
  Receive Date: 20170707
  Receipt Date: 20170707
  Transmission Date: 20171127
  Serious: Yes (Hospitalization)
  Sender: FDA-Public Use
  Company Number: None

PATIENT
  Age: 82 Year
  Sex: Male
  Weight: 74.39 kg

DRUGS (1)
  1. PIPERACILLIN/TAZOBACTAM [Suspect]
     Active Substance: PIPERACILLIN SODIUM\TAZOBACTAM SODIUM
     Indication: SCROTAL ABSCESS
     Route: 042
     Dates: start: 20170624, end: 20170624

REACTIONS (3)
  - Dyspnoea [None]
  - Palatal oedema [None]
  - Pharyngeal oedema [None]

NARRATIVE: CASE EVENT DATE: 20170624
